FAERS Safety Report 8096582-1 (Version None)
Quarter: 2012Q1

REPORT INFORMATION
  Report Type: 
  Country: None (occurrence: None)
  Receive Date: 20120129
  Receipt Date: 20111108
  Transmission Date: 20120608
  Serious: No
  Sender: FDA-Public Use
  Company Number: US-ABBOTT-11P-163-0872602-00

PATIENT
  Age: 42 Year
  Sex: Female

DRUGS (8)
  1. ACETAMINOPHEN [Concomitant]
     Indication: PRODUCT USED FOR UNKNOWN INDICATION
     Dosage: TWICE DAILY AS NEEDED
  2. HUMIRA [Suspect]
     Dates: start: 20110801
  3. ASACOL [Concomitant]
     Indication: COLITIS
  4. BENADRYL [Concomitant]
     Indication: PRODUCT USED FOR UNKNOWN INDICATION
     Dosage: 1 TIME DAILY AS NEEDED
  5. AZATHIOPRINE [Concomitant]
     Indication: COLITIS
  6. FENTANYL [Concomitant]
     Indication: PAIN
  7. CANASA [Concomitant]
     Indication: PRODUCT USED FOR UNKNOWN INDICATION
     Dosage: AT NIGHT
  8. HUMIRA [Suspect]
     Indication: CROHN'S DISEASE
     Dates: end: 20110801

REACTIONS (7)
  - COLITIS [None]
  - MUSCULOSKELETAL STIFFNESS [None]
  - INJECTION SITE HAEMORRHAGE [None]
  - INJECTION SITE HAEMATOMA [None]
  - MUSCLE TIGHTNESS [None]
  - MYALGIA [None]
  - INJECTION SITE URTICARIA [None]
